FAERS Safety Report 8372058-9 (Version None)
Quarter: 2012Q2

REPORT INFORMATION
  Report Type: 
  Country: None (occurrence: None)
  Receive Date: 20120520
  Receipt Date: 20120423
  Transmission Date: 20120825
  Serious: Yes (Hospitalization)
  Sender: FDA-Public Use
  Company Number: PHHY2012KR010362

PATIENT
  Sex: Female
  Weight: 52 kg

DRUGS (2)
  1. EXJADE [Suspect]
     Indication: APLASTIC ANAEMIA
     Dosage: 10 MG/KG, UNK
     Route: 048
     Dates: start: 20091116, end: 20091231
  2. EXJADE [Suspect]
     Dosage: UNK UKN, UNK

REACTIONS (2)
  - LABORATORY TEST ABNORMAL [None]
  - RASH [None]
